FAERS Safety Report 13280481 (Version 1)
Quarter: 2017Q1

REPORT INFORMATION
  Report Type: Spontaneous
  Country: US (occurrence: US)
  Receive Date: 20170228
  Receipt Date: 20170228
  Transmission Date: 20170428
  Serious: No
  Sender: FDA-Public Use
  Company Number: None

PATIENT
  Age: 33 Year
  Sex: Male
  Weight: 78.75 kg

DRUGS (12)
  1. SYNTOL AMD [Concomitant]
  2. XIIDRA [Suspect]
     Active Substance: LIFITEGRAST
     Indication: DRY EYE
     Dosage: ?          QUANTITY:60 DROP(S);?
     Route: 047
     Dates: start: 20170223, end: 20170223
  3. ALBUTEROL INHALER [Concomitant]
     Active Substance: ALBUTEROL
  4. ASTAXANTHIN NETTLE [Concomitant]
  5. PATADAY [Concomitant]
     Active Substance: OLOPATADINE HYDROCHLORIDE
  6. COLOSTRUM HUMAN [Concomitant]
     Active Substance: HUMAN COLOSTRUM
  7. SELENIUM GARDEN OF LIFE PROBIOTIC [Concomitant]
  8. MEGAFOOD MEN^S DAILY MSM [Concomitant]
  9. COLLAGEN [Concomitant]
     Active Substance: COLLAGEN
  10. PEPTIDES [Concomitant]
  11. SINGULAIR [Concomitant]
     Active Substance: MONTELUKAST SODIUM
  12. AMOXICILLIN. [Concomitant]
     Active Substance: AMOXICILLIN

REACTIONS (5)
  - Accidental exposure to product [None]
  - Eyelids pruritus [None]
  - Pruritus [None]
  - Urticaria [None]
  - Eye pain [None]
